FAERS Safety Report 9101716 (Version 2)
Quarter: 2013Q1

REPORT INFORMATION
  Report Type: Spontaneous
  Country: US (occurrence: US)
  Receive Date: 20130218
  Receipt Date: 20130311
  Transmission Date: 20140127
  Serious: No
  Sender: FDA-Public Use
  Company Number: US-009507513-1301USA009767

PATIENT
  Age: 38 Year
  Sex: Female
  Weight: 93.42 kg

DRUGS (1)
  1. NEXPLANON [Suspect]
     Indication: CONTRACEPTION
     Dosage: UNK
     Dates: start: 20121115, end: 20121115

REACTIONS (3)
  - Complication of device insertion [Unknown]
  - Device malfunction [Unknown]
  - No adverse event [Unknown]
